FAERS Safety Report 18523497 (Version 3)
Quarter: 2020Q4

REPORT INFORMATION
  Report Type: Spontaneous
  Country: JP (occurrence: JP)
  Receive Date: 20201119
  Receipt Date: 20201224
  Transmission Date: 20210114
  Serious: Yes (Other)
  Sender: FDA-Public Use
  Company Number: JP-BAYER-2020-245717

PATIENT
  Age: 67 Year
  Sex: Male

DRUGS (8)
  1. WARFARIN [Concomitant]
     Active Substance: WARFARIN
  2. MICARDIS [Concomitant]
     Active Substance: TELMISARTAN
  3. METGLUCO [Concomitant]
     Active Substance: METFORMIN HYDROCHLORIDE
  4. NESINA [Concomitant]
     Active Substance: ALOGLIPTIN BENZOATE
  5. BAYASPIRIN 100 MG [Concomitant]
     Active Substance: ASPIRIN
  6. STIVARGA [Suspect]
     Active Substance: REGORAFENIB
     Indication: RECTAL CANCER
     Dosage: UNK
     Route: 048
     Dates: start: 20200916, end: 20201021
  7. LANSOPRAZOLE. [Concomitant]
     Active Substance: LANSOPRAZOLE
  8. BISOPROLOL FUMARATE. [Concomitant]
     Active Substance: BISOPROLOL FUMARATE

REACTIONS (4)
  - Depressed level of consciousness [Recovered/Resolved]
  - Hyporesponsive to stimuli [Recovered/Resolved]
  - Altered state of consciousness [Recovered/Resolved]
  - Amnesia [Recovered/Resolved]

NARRATIVE: CASE EVENT DATE: 20201019
